FAERS Safety Report 25830428 (Version 2)
Quarter: 2025Q3

REPORT INFORMATION
  Report Type: Spontaneous
  Country: US (occurrence: US)
  Receive Date: 20250922
  Receipt Date: 20250923
  Transmission Date: 20251020
  Serious: Yes (Hospitalization)
  Sender: ROCHE
  Company Number: US-ROCHE-10000238696

PATIENT
  Age: 58 Year
  Sex: Male
  Weight: 90.72 kg

DRUGS (31)
  1. XOLAIR [Suspect]
     Active Substance: OMALIZUMAB
     Indication: Asthma
     Dosage: STRENGTH: 300MG/2ML
     Route: 058
     Dates: start: 20240726
  2. XOLAIR [Suspect]
     Active Substance: OMALIZUMAB
     Indication: Asthma
     Route: 058
  3. XOLAIR [Suspect]
     Active Substance: OMALIZUMAB
     Indication: Urticaria
  4. LANTUS SOLOSTAR [Concomitant]
     Active Substance: INSULIN GLARGINE
  5. MOUNJARO [Concomitant]
     Active Substance: TIRZEPATIDE
  6. HUMALOG [Concomitant]
     Active Substance: INSULIN LISPRO
  7. EZETIMIBE [Concomitant]
     Active Substance: EZETIMIBE
  8. METFORMIN [Concomitant]
     Active Substance: METFORMIN HYDROCHLORIDE
  9. ROSUVASTATIN [Concomitant]
     Active Substance: ROSUVASTATIN
  10. NITROGLYCERIN [Concomitant]
     Active Substance: NITROGLYCERIN
  11. CARVEDILOL [Concomitant]
     Active Substance: CARVEDILOL
  12. CHLORTHALIDONE [Concomitant]
     Active Substance: CHLORTHALIDONE
  13. FINASTERIDE [Concomitant]
     Active Substance: FINASTERIDE
  14. LISINOPRIL [Concomitant]
     Active Substance: LISINOPRIL
  15. NURTEC ODT [Concomitant]
     Active Substance: RIMEGEPANT SULFATE
  16. REYVOW [Concomitant]
     Active Substance: LASMIDITAN
  17. VYEPTI [Concomitant]
     Active Substance: EPTINEZUMAB-JJMR
  18. HYDROXYZINE [Concomitant]
     Active Substance: HYDROXYZINE HYDROCHLORIDE
  19. FAMOTIDINE [Concomitant]
     Active Substance: FAMOTIDINE
  20. ALBUTEROL [Concomitant]
     Active Substance: ALBUTEROL
  21. DUONEB [Concomitant]
     Active Substance: ALBUTEROL SULFATE\IPRATROPIUM BROMIDE
  22. ASTEPRO [Concomitant]
     Active Substance: AZELASTINE HYDROCHLORIDE
  23. GUAIFENESIN [Concomitant]
     Active Substance: GUAIFENESIN
  24. LEVOCETIRIZINE [Concomitant]
     Active Substance: LEVOCETIRIZINE
  25. FLUTICASONE [Concomitant]
     Active Substance: FLUTICASONE
  26. ASPIRIN [Concomitant]
     Active Substance: ASPIRIN
  27. PLAVIX [Concomitant]
     Active Substance: CLOPIDOGREL BISULFATE
  28. IPRATROPIUM BROMIDE [Concomitant]
     Active Substance: IPRATROPIUM BROMIDE
     Indication: Hypersensitivity
     Dosage: 2 SPRAYS ONCE A DAY IN THE MORNING (0.06 (165 SP)
  29. TRELEGY ELLIPTA [Concomitant]
     Active Substance: FLUTICASONE FUROATE\UMECLIDINIUM BROMIDE\VILANTEROL TRIFENATATE
     Indication: Hypersensitivity
     Dosage: 200/62
     Route: 055
  30. VITAMIN B12 [Concomitant]
     Active Substance: CYANOCOBALAMIN
  31. VITAMIN C [Concomitant]
     Active Substance: ASCORBIC ACID

REACTIONS (1)
  - Cerebrovascular accident [Not Recovered/Not Resolved]

NARRATIVE: CASE EVENT DATE: 20250914
